FAERS Safety Report 12481691 (Version 1)
Quarter: 2016Q2

REPORT INFORMATION
  Report Type: Spontaneous
  Country: JP (occurrence: JP)
  Receive Date: 20160620
  Receipt Date: 20160620
  Transmission Date: 20160815
  Serious: Yes (Hospitalization, Other)
  Sender: FDA-Public Use
  Company Number: JP-GILEAD-2016-0210904

PATIENT
  Age: 82 Year
  Sex: Male
  Weight: 67.5 kg

DRUGS (8)
  1. COPEGUS [Suspect]
     Active Substance: RIBAVIRIN
     Dosage: 400 MG, UNK
     Route: 048
     Dates: start: 20160427
  2. SPIRONOLACTONE. [Concomitant]
     Active Substance: SPIRONOLACTONE
     Indication: CARDIAC FAILURE
     Dosage: 25 MG, UNK
     Route: 048
  3. COPEGUS [Suspect]
     Active Substance: RIBAVIRIN
     Dosage: 400 MG, UNK
     Route: 048
     Dates: start: 20160413, end: 20160414
  4. COPEGUS [Suspect]
     Active Substance: RIBAVIRIN
     Indication: HEPATITIS C
     Dosage: 600 MG, UNK
     Route: 048
     Dates: start: 20160211, end: 20160413
  5. BAYASPIRIN [Concomitant]
     Active Substance: ASPIRIN
     Indication: CONGESTIVE CARDIOMYOPATHY
     Dosage: 100 MG, UNK
     Route: 048
  6. SOVALDI [Suspect]
     Active Substance: SOFOSBUVIR
     Dosage: 400 UNK, UNK
     Route: 048
     Dates: start: 20160427
  7. NEXIUM [Concomitant]
     Active Substance: ESOMEPRAZOLE MAGNESIUM
     Dosage: 20 MG, UNK
     Route: 048
  8. SOVALDI [Suspect]
     Active Substance: SOFOSBUVIR
     Indication: HEPATITIS C
     Dosage: 400 MG, UNK
     Route: 048
     Dates: start: 20160211, end: 20160414

REACTIONS (2)
  - Cardiac failure [Recovered/Resolved]
  - Anaemia [Recovered/Resolved]

NARRATIVE: CASE EVENT DATE: 20160413
